FAERS Safety Report 18648526 (Version 1)
Quarter: 2020Q4

REPORT INFORMATION
  Report Type: Spontaneous
  Country: US (occurrence: US)
  Receive Date: 20201222
  Receipt Date: 20201222
  Transmission Date: 20210114
  Serious: Yes (Disabling, Other)
  Sender: FDA-Public Use
  Company Number: US-009507513-2012USA009111

PATIENT
  Sex: Female

DRUGS (3)
  1. BONIVA [Suspect]
     Active Substance: IBANDRONATE SODIUM
     Indication: OSTEOPOROSIS
     Dosage: UNK
     Route: 065
     Dates: start: 2004, end: 2010
  2. FOSAMAX [Suspect]
     Active Substance: ALENDRONATE SODIUM
     Dosage: UNK
  3. FOSAMAX [Suspect]
     Active Substance: ALENDRONATE SODIUM
     Indication: OSTEOPOROSIS
     Dosage: UNK
     Route: 065
     Dates: start: 2004, end: 2010

REACTIONS (7)
  - Stress fracture [Unknown]
  - Low turnover osteopathy [Unknown]
  - Bone disorder [Unknown]
  - Anxiety [Unknown]
  - Emotional distress [Unknown]
  - Incorrect product administration duration [Unknown]
  - Femur fracture [Unknown]

NARRATIVE: CASE EVENT DATE: 20100805
